FAERS Safety Report 23523649 (Version 1)
Quarter: 2024Q1

REPORT INFORMATION
  Report Type: Spontaneous
  Country: CA (occurrence: CA)
  Receive Date: 20240214
  Receipt Date: 20240214
  Transmission Date: 20240410
  Serious: Yes (Other)
  Sender: FDA-Public Use
  Company Number: CA-PFIZER INC-202400040745

PATIENT
  Age: 22 Year
  Sex: Male

DRUGS (11)
  1. METHOTREXATE SODIUM [Suspect]
     Active Substance: METHOTREXATE SODIUM
     Dosage: 15 MG, WEEKLY
     Route: 065
  2. BILASTINE [Suspect]
     Active Substance: BILASTINE
     Dosage: 20 MG, 2X/DAY
     Route: 048
  3. CLOBETASOL [Suspect]
     Active Substance: CLOBETASOL
     Dosage: UNK, 2X/DAY
     Route: 065
  4. HYDROCORTISONE VALERATE [Suspect]
     Active Substance: HYDROCORTISONE VALERATE
     Dosage: UNK, 2X/DAY
     Route: 065
  5. PROTOPIC [Suspect]
     Active Substance: TACROLIMUS
     Dosage: UNK, 2X/DAY
     Route: 065
  6. RANITIDINE [Suspect]
     Active Substance: RANITIDINE
     Dosage: 150 MG, 1X/DAY
     Route: 065
  7. RUPATADINE FUMARATE [Suspect]
     Active Substance: RUPATADINE FUMARATE
     Dosage: 10 MG, 2X/DAY
     Route: 065
  8. BETAMETHASONE DIPROPIONATE [Suspect]
     Active Substance: BETAMETHASONE DIPROPIONATE
     Dosage: UNK, 2X/DAY
     Route: 065
  9. BOTULINUM TOXIN NOS [Concomitant]
     Active Substance: BOTULINUM TOXIN NOS
  10. CONCERTA [Concomitant]
     Active Substance: METHYLPHENIDATE HYDROCHLORIDE
  11. SERTRALINE [Concomitant]
     Active Substance: SERTRALINE HYDROCHLORIDE

REACTIONS (2)
  - Condition aggravated [Unknown]
  - Drug ineffective [Unknown]
